FAERS Safety Report 8033351-2 (Version None)
Quarter: 2012Q1

REPORT INFORMATION
  Report Type: 
  Country: None (occurrence: None)
  Receive Date: 20120110
  Receipt Date: 20120110
  Transmission Date: 20120608
  Serious: No
  Sender: FDA-Public Use
  Company Number: US-PFIZER INC-2012005023

PATIENT
  Sex: Female
  Weight: 63.946 kg

DRUGS (3)
  1. CHANTIX [Suspect]
     Indication: SMOKING CESSATION THERAPY
     Dosage: 0.5 MG, 1X/DAY
     Route: 048
     Dates: start: 20100701, end: 20100101
  2. CHANTIX [Suspect]
     Dosage: UNK
     Route: 048
     Dates: start: 20100101, end: 20101001
  3. LAMICTAL [Concomitant]
     Indication: BIPOLAR DISORDER
     Dosage: 100 MG, 2X/DAY

REACTIONS (5)
  - PAIN [None]
  - INSOMNIA [None]
  - INFLUENZA [None]
  - MALAISE [None]
  - NIGHTMARE [None]
